FAERS Safety Report 23534527 (Version 2)
Quarter: 2024Q2

REPORT INFORMATION
  Report Type: Spontaneous
  Country: US (occurrence: US)
  Receive Date: 20240217
  Receipt Date: 20240608
  Transmission Date: 20240716
  Serious: No
  Sender: FDA-Public Use
  Company Number: US-SA-SAC20240214001287

PATIENT
  Age: 13 Year
  Sex: Male
  Weight: 59 kg

DRUGS (2)
  1. DUPIXENT [Suspect]
     Active Substance: DUPILUMAB
     Indication: Dermatitis atopic
     Dosage: 600 MG, 1X
     Route: 058
  2. DUPIXENT [Suspect]
     Active Substance: DUPILUMAB
     Dosage: 300 MG, QOW
     Route: 058

REACTIONS (6)
  - Skin haemorrhage [Recovering/Resolving]
  - Skin fissures [Recovering/Resolving]
  - Dry skin [Unknown]
  - Pruritus [Recovering/Resolving]
  - Dermatitis atopic [Unknown]
  - Product prescribing error [Unknown]
